FAERS Safety Report 23309347 (Version 6)
Quarter: 2024Q1

REPORT INFORMATION
  Report Type: Spontaneous
  Country: CA (occurrence: CA)
  Receive Date: 20231218
  Receipt Date: 20240312
  Transmission Date: 20240409
  Serious: Yes (Other)
  Sender: FDA-Public Use
  Company Number: CA-KARYOPHARM-2023KPT002194

PATIENT

DRUGS (6)
  1. XPOVIO [Suspect]
     Active Substance: SELINEXOR
     Indication: Plasma cell myeloma
     Dosage: 40MG (2X 20MG) ONCE WEEK
     Route: 048
     Dates: start: 20231025
  2. XPOVIO [Suspect]
     Active Substance: SELINEXOR
     Dosage: 40MG (2X20MG) ONCE A WEEK
     Route: 048
     Dates: start: 202311
  3. XPOVIO [Suspect]
     Active Substance: SELINEXOR
     Dosage: UNK
     Route: 048
     Dates: start: 202401
  4. XPOVIO [Suspect]
     Active Substance: SELINEXOR
     Dosage: 40MG ONCE A WEEK FOR 4 WEEKS
     Route: 065
     Dates: start: 202403
  5. DEXAMETHASONE [Concomitant]
     Active Substance: DEXAMETHASONE
     Dosage: UNK
  6. POMALIDOMIDE [Concomitant]
     Active Substance: POMALIDOMIDE
     Dosage: UNK

REACTIONS (10)
  - Malignant melanoma [Not Recovered/Not Resolved]
  - Insomnia [Unknown]
  - Cellulitis [Not Recovered/Not Resolved]
  - Peripheral swelling [Unknown]
  - Malaise [Unknown]
  - Nasopharyngitis [Unknown]
  - Skin ulcer [Unknown]
  - Inflammation [Unknown]
  - Nausea [Recovered/Resolved]
  - Diarrhoea [Unknown]

NARRATIVE: CASE EVENT DATE: 20230101
